FAERS Safety Report 8158933-9 (Version None)
Quarter: 2012Q1

REPORT INFORMATION
  Report Type: 
  Country: None (occurrence: None)
  Receive Date: 20120223
  Receipt Date: 20120213
  Transmission Date: 20120608
  Serious: Yes (Other)
  Sender: FDA-Public Use
  Company Number: BR-AMGEN-BRASP2012006714

PATIENT
  Age: 58 Year
  Sex: Female
  Weight: 75 kg

DRUGS (7)
  1. PROPAFENONE HCL [Concomitant]
     Indication: ARRHYTHMIA
     Dosage: 300 MG, 1X/DAY
  2. DILTIAZEM HYDROCHLORIDE [Concomitant]
  3. ENBREL [Suspect]
     Dosage: POWDER AND SOLVENT FOR SOLUTION FOR INJECTION
     Dates: start: 20070101
  4. FLOTAC                             /00372301/ [Concomitant]
     Indication: PAIN
     Dosage: 70 MG, AS NEEDED
  5. ENBREL [Suspect]
     Dosage: 50 MG, ONCE WEEKLY
     Route: 058
     Dates: start: 20110901
  6. DILTIAZEM HYDROCHLORIDE [Concomitant]
     Indication: ARRHYTHMIA
     Dosage: 60 MG, 2X/DAY
  7. ENBREL [Suspect]
     Indication: RHEUMATOID ARTHRITIS
     Dosage: 50 MG, ONCE WEEKLY
     Route: 058
     Dates: start: 20111001

REACTIONS (4)
  - INFLUENZA [None]
  - INCORRECT STORAGE OF DRUG [None]
  - ARTHROPATHY [None]
  - INJECTION SITE PAIN [None]
